FAERS Safety Report 18435297 (Version 1)
Quarter: 2020Q4

REPORT INFORMATION
  Report Type: Spontaneous
  Country: US (occurrence: US)
  Receive Date: 20201027
  Receipt Date: 20201027
  Transmission Date: 20210114
  Serious: No
  Sender: FDA-Public Use
  Company Number: None

PATIENT
  Age: 90 Year
  Sex: Female
  Weight: 44 kg

DRUGS (1)
  1. ORITAVANCIN. [Suspect]
     Active Substance: ORITAVANCIN
     Dates: start: 20191002, end: 20191017

REACTIONS (2)
  - Pyrexia [None]
  - Oxygen saturation decreased [None]

NARRATIVE: CASE EVENT DATE: 20191017
